FAERS Safety Report 19116416 (Version 1)
Quarter: 2021Q2

REPORT INFORMATION
  Report Type: Spontaneous
  Country: EG (occurrence: EG)
  Receive Date: 20210409
  Receipt Date: 20210409
  Transmission Date: 20210717
  Serious: Yes (Other)
  Sender: FDA-Public Use
  Company Number: EG-JNJFOC-20210412649

PATIENT

DRUGS (7)
  1. RIVAROXABAN [Suspect]
     Active Substance: RIVAROXABAN
     Indication: PRODUCT USED FOR UNKNOWN INDICATION
     Dosage: 10 MG
     Route: 048
     Dates: start: 2021
  2. ASPRIN [Concomitant]
     Active Substance: ASPIRIN
     Dosage: 71 MG
  3. TRENTAL [Concomitant]
     Active Substance: PENTOXIFYLLINE
  4. ASPRIN [Concomitant]
     Active Substance: ASPIRIN
     Dosage: UNK
     Dates: start: 2006
  5. EPESIN [Concomitant]
     Dosage: UNK
     Dates: start: 2006
  6. FORTZAAR [Concomitant]
     Active Substance: HYDROCHLOROTHIAZIDE\LOSARTAN POTASSIUM
     Dosage: UNK
     Dates: start: 2006
  7. DAFLON [DIOSMIN] [Concomitant]
     Active Substance: DIOSMIN

REACTIONS (6)
  - Fatigue [Unknown]
  - Loss of consciousness [Recovered/Resolved]
  - Tachycardia [Unknown]
  - Faeces discoloured [Unknown]
  - Product dose omission issue [Unknown]
  - Chest pain [Unknown]

NARRATIVE: CASE EVENT DATE: 2021
